FAERS Safety Report 9715654 (Version 2)
Quarter: 2013Q4

REPORT INFORMATION
  Report Type: Report from Study
  Country: MX (occurrence: MX)
  Receive Date: 20131127
  Receipt Date: 20131127
  Transmission Date: 20140711
  Serious: Yes (Other)
  Sender: FDA-Public Use
  Company Number: MX-ROCHE-1260894

PATIENT
  Age: 61 Year
  Sex: Male
  Weight: 79 kg

DRUGS (4)
  1. XELODA [Suspect]
     Indication: COLORECTAL CANCER METASTATIC
     Dosage: 4-0-3-14 DAYS AND RESTING FOR 7 DAYS
     Route: 048
     Dates: start: 201209, end: 201305
  2. XELODA [Suspect]
     Indication: COLORECTAL CANCER
     Dosage: 4-0-3-14 DAYS AND RESTING FOR 7 DAYS
     Route: 048
     Dates: start: 201310
  3. AVASTIN [Suspect]
     Indication: COLORECTAL CANCER
     Route: 048
  4. CAPTOPRIL [Concomitant]
     Indication: HYPERTENSION
     Route: 048
     Dates: start: 2008

REACTIONS (2)
  - Disease progression [Not Recovered/Not Resolved]
  - Cell marker increased [Not Recovered/Not Resolved]
